FAERS Safety Report 19728820 (Version 1)
Quarter: 2021Q3

REPORT INFORMATION
  Report Type: Spontaneous
  Country: CN (occurrence: CN)
  Receive Date: 20210820
  Receipt Date: 20210820
  Transmission Date: 20211014
  Serious: Yes (Other)
  Sender: FDA-Public Use
  Company Number: CN-PFIZER INC-202101029794

PATIENT
  Age: 25 Year
  Sex: Female

DRUGS (2)
  1. ZOLOFT [Suspect]
     Active Substance: SERTRALINE HYDROCHLORIDE
     Indication: BIPOLAR DISORDER
     Dosage: UNK
  2. DEPAKINE [VALPROATE SODIUM] [Suspect]
     Active Substance: VALPROATE SODIUM
     Indication: BIPOLAR DISORDER
     Dosage: UNK

REACTIONS (6)
  - Menstrual disorder [Unknown]
  - Hypomenorrhoea [Unknown]
  - Menstruation delayed [Unknown]
  - Menstruation irregular [Unknown]
  - Drug dependence [Unknown]
  - Off label use [Unknown]

NARRATIVE: CASE EVENT DATE: 2018
